FAERS Safety Report 15599292 (Version 3)
Quarter: 2018Q4

REPORT INFORMATION
  Report Type: Report from Study
  Country: US (occurrence: US)
  Receive Date: 20181108
  Receipt Date: 20181201
  Transmission Date: 20190205
  Serious: Yes (Death)
  Sender: FDA-Public Use
  Company Number: US-TEVA-2018-US-972736

PATIENT
  Age: 48 Year
  Sex: Male
  Weight: 81 kg

DRUGS (4)
  1. LAMOTRIGINE. [Suspect]
     Active Substance: LAMOTRIGINE
     Route: 065
  2. AMFETAMINE [Suspect]
     Active Substance: AMPHETAMINE
     Route: 065
  3. METAMFETAMINE [Suspect]
     Active Substance: METHAMPHETAMINE
     Route: 065
  4. OXYCODONE [Suspect]
     Active Substance: OXYCODONE
     Route: 065

REACTIONS (1)
  - Accidental overdose [Fatal]
